FAERS Safety Report 21660966 (Version 2)
Quarter: 2023Q1

REPORT INFORMATION
  Report Type: Report from Study
  Country: US (occurrence: US)
  Receive Date: 20221130
  Receipt Date: 20230310
  Transmission Date: 20230417
  Serious: No
  Sender: FDA-Public Use
  Company Number: US-ABBVIE-4177706

PATIENT
  Sex: Female

DRUGS (1)
  1. RINVOQ [Suspect]
     Active Substance: UPADACITINIB
     Indication: Rheumatoid arthritis
     Route: 048
     Dates: start: 202211

REACTIONS (7)
  - Chest discomfort [Recovered/Resolved]
  - Swollen tongue [Recovered/Resolved]
  - Adverse drug reaction [Recovered/Resolved]
  - Joint swelling [Recovered/Resolved]
  - Lip swelling [Recovered/Resolved]
  - Pain in extremity [Recovered/Resolved]
  - Pain in extremity [Recovered/Resolved]

NARRATIVE: CASE EVENT DATE: 20220101
